FAERS Safety Report 12904529 (Version 1)
Quarter: 2016Q4

REPORT INFORMATION
  Report Type: Spontaneous
  Country: US (occurrence: US)
  Receive Date: 20161102
  Receipt Date: 20161102
  Transmission Date: 20170207
  Serious: Yes (Other)
  Sender: FDA-Public Use
  Company Number: US-JAZZ-2016-US-016451

PATIENT
  Age: 62 Year
  Sex: Female

DRUGS (41)
  1. XYREM [Suspect]
     Active Substance: SODIUM OXYBATE
     Dosage: 4.5 G, BID
     Route: 048
     Dates: start: 200411, end: 2013
  2. XYREM [Suspect]
     Active Substance: SODIUM OXYBATE
     Dosage: 4.5 G, BID
     Route: 048
     Dates: start: 201407, end: 2014
  3. MIRAPEX [Concomitant]
     Active Substance: PRAMIPEXOLE DIHYDROCHLORIDE
  4. FISH OIL [Concomitant]
     Active Substance: FISH OIL
  5. XYREM [Suspect]
     Active Substance: SODIUM OXYBATE
     Dosage: 4.5 G, BID
     Route: 048
     Dates: start: 201507
  6. EPIPEN [Concomitant]
     Active Substance: EPINEPHRINE
  7. NORVASC [Concomitant]
     Active Substance: AMLODIPINE BESYLATE
  8. OXYCODONE AND ACETAMINOPHEN [Concomitant]
     Active Substance: ACETAMINOPHEN\OXYCODONE HYDROCHLORIDE
  9. XYREM [Suspect]
     Active Substance: SODIUM OXYBATE
     Indication: CATAPLEXY
     Dosage: 3 G, BID
     Route: 048
     Dates: start: 200303, end: 200304
  10. VITAMIN C [Concomitant]
     Active Substance: ASCORBIC ACID
  11. LIPITOR [Concomitant]
     Active Substance: ATORVASTATIN CALCIUM
  12. IMITREX [Concomitant]
     Active Substance: SUMATRIPTAN SUCCINATE
  13. SERTRALINE HCL [Concomitant]
     Active Substance: SERTRALINE HYDROCHLORIDE
  14. XYREM [Suspect]
     Active Substance: SODIUM OXYBATE
     Indication: NARCOLEPSY
     Dosage: 2.25 G, BID
     Route: 048
     Dates: start: 200303, end: 200303
  15. XYREM [Suspect]
     Active Substance: SODIUM OXYBATE
     Dosage: 4.5 G, BID
     Route: 048
     Dates: start: 200407, end: 2004
  16. DICLOFENAC SODIUM. [Concomitant]
     Active Substance: DICLOFENAC SODIUM
  17. ALBUTEROL SULFATE HFA [Concomitant]
     Active Substance: ALBUTEROL SULFATE
  18. ADDERALL [Concomitant]
     Active Substance: AMPHETAMINE ASPARTATE\AMPHETAMINE SULFATE\DEXTROAMPHETAMINE SACCHARATE\DEXTROAMPHETAMINE SULFATE
  19. KEFLEX [Concomitant]
     Active Substance: CEPHALEXIN
  20. CALCIUM +D [Concomitant]
     Active Substance: CALCIUM\VITAMIN D
  21. XYREM [Suspect]
     Active Substance: SODIUM OXYBATE
     Dosage: 2.25 G, BID
     Route: 048
     Dates: start: 200410, end: 200411
  22. XYREM [Suspect]
     Active Substance: SODIUM OXYBATE
     Dosage: 2.25 G, BID
     Route: 048
     Dates: start: 201407, end: 201407
  23. MARIJUANA [Concomitant]
     Active Substance: CANNABIS SATIVA SUBSP. INDICA TOP
  24. ATORVASTATIN [Concomitant]
     Active Substance: ATORVASTATIN
  25. REMERON [Concomitant]
     Active Substance: MIRTAZAPINE
  26. ASPIRIN. [Concomitant]
     Active Substance: ASPIRIN
  27. TOPROL XL [Concomitant]
     Active Substance: METOPROLOL SUCCINATE
  28. ALBUTEROL SULFATE. [Concomitant]
     Active Substance: ALBUTEROL SULFATE
  29. XYREM [Suspect]
     Active Substance: SODIUM OXYBATE
     Dosage: 4.5 G, BID
     Route: 048
     Dates: start: 200304, end: 2004
  30. IRON [Concomitant]
     Active Substance: IRON
  31. HYDROCODONE/ACETAMINOPHEN [Concomitant]
     Active Substance: ACETAMINOPHEN\HYDROCODONE
  32. TIZANIDINE HCL [Concomitant]
     Active Substance: TIZANIDINE HYDROCHLORIDE
  33. VANIQA [Concomitant]
     Active Substance: EFLORNITHINE HYDROCHLORIDE
  34. NEXIUM [Concomitant]
     Active Substance: ESOMEPRAZOLE MAGNESIUM
  35. VITAMIN B6 [Concomitant]
     Active Substance: PYRIDOXINE HYDROCHLORIDE
  36. DUONEB [Concomitant]
     Active Substance: ALBUTEROL SULFATE\IPRATROPIUM BROMIDE
  37. NAPROXEN. [Concomitant]
     Active Substance: NAPROXEN
  38. XYREM [Suspect]
     Active Substance: SODIUM OXYBATE
     Dosage: DOSE ADJUSTMENTS
     Route: 048
     Dates: start: 201407, end: 201407
  39. NASONEX [Concomitant]
     Active Substance: MOMETASONE FUROATE
  40. VITAMIN B12 [Concomitant]
     Active Substance: CYANOCOBALAMIN
  41. ZOLOFT [Concomitant]
     Active Substance: SERTRALINE HYDROCHLORIDE

REACTIONS (3)
  - Knee operation [Unknown]
  - Cartilage injury [Unknown]
  - Swelling [Not Recovered/Not Resolved]

NARRATIVE: CASE EVENT DATE: 201608
